FAERS Safety Report 13778701 (Version 3)
Quarter: 2017Q3

REPORT INFORMATION
  Report Type: Spontaneous
  Country: JP (occurrence: JP)
  Receive Date: 20170721
  Receipt Date: 20170804
  Transmission Date: 20171127
  Serious: Yes (Life-Threatening, Hospitalization, Other)
  Sender: FDA-Public Use
  Company Number: JP-PFIZER INC-2017315026

PATIENT
  Age: 69 Year
  Sex: Female

DRUGS (2)
  1. GEMCITABINE HYDROCHLORIDE. [Suspect]
     Active Substance: GEMCITABINE HYDROCHLORIDE
     Dosage: 1000 MG/M2, CYCLIC (DAY 1, 8, 15/28 DAY)
     Dates: start: 201107
  2. GEMCITABINE HYDROCHLORIDE. [Suspect]
     Active Substance: GEMCITABINE HYDROCHLORIDE
     Indication: PANCREATIC CARCINOMA
     Dosage: 800 MG/M2, CYCLIC (DAY 1, 8)
     Dates: start: 201106

REACTIONS (4)
  - Bone marrow failure [Unknown]
  - Pulmonary alveolar haemorrhage [Recovered/Resolved]
  - Anaemia [Recovering/Resolving]
  - Interstitial lung disease [Recovered/Resolved]
